FAERS Safety Report 6484524-1 (Version None)
Quarter: 2009Q4

REPORT INFORMATION
  Report Type: 
  Country: None (occurrence: None)
  Receive Date: 20091209
  Receipt Date: 20091201
  Transmission Date: 20100525
  Serious: Yes (Other)
  Sender: FDA-Public Use
  Company Number: PHHY2009DE53159

PATIENT
  Age: 57 Year
  Sex: Female

DRUGS (1)
  1. FEMARA [Suspect]
     Indication: METASTASES TO LIVER
     Dosage: 2.5 MG, QD
     Route: 048
     Dates: start: 20030301

REACTIONS (5)
  - CHRONIC MYELOID LEUKAEMIA [None]
  - EYE OEDEMA [None]
  - HOT FLUSH [None]
  - HYPERHIDROSIS [None]
  - OEDEMA PERIPHERAL [None]
